FAERS Safety Report 11988720 (Version 2)
Quarter: 2016Q2

REPORT INFORMATION
  Report Type: Report from Study
  Country: VE (occurrence: VE)
  Receive Date: 20160202
  Receipt Date: 20160520
  Transmission Date: 20160815
  Serious: Yes (Hospitalization)
  Sender: FDA-Public Use
  Company Number: PHHY2016VE013202

PATIENT
  Sex: Female

DRUGS (2)
  1. AFINITOR [Suspect]
     Active Substance: EVEROLIMUS
     Indication: METASTASES TO BONE
     Dosage: 10 MG, QD
     Route: 048
     Dates: end: 201511
  2. AROMASIN [Concomitant]
     Active Substance: EXEMESTANE
     Indication: PRODUCT USED FOR UNKNOWN INDICATION
     Dosage: 10 MG, QD
     Route: 065

REACTIONS (8)
  - Vomiting [Recovering/Resolving]
  - Abasia [Recovering/Resolving]
  - Product use issue [Unknown]
  - Viral infection [Recovering/Resolving]
  - Malaise [Recovering/Resolving]
  - Pain [Not Recovered/Not Resolved]
  - Disease recurrence [Recovering/Resolving]
  - Drug ineffective for unapproved indication [Not Recovered/Not Resolved]
